FAERS Safety Report 15805393 (Version 2)
Quarter: 2019Q1

REPORT INFORMATION
  Report Type: Spontaneous
  Country: US (occurrence: US)
  Receive Date: 20190110
  Receipt Date: 20190212
  Transmission Date: 20190417
  Serious: No
  Sender: FDA-Public Use
  Company Number: US-TEVA-2018-US-993863

PATIENT
  Sex: Female

DRUGS (1)
  1. KLONOPIN [Suspect]
     Active Substance: CLONAZEPAM
     Route: 065

REACTIONS (5)
  - Feeling abnormal [Unknown]
  - Product substitution issue [Unknown]
  - Insomnia [Unknown]
  - Intentional product misuse [Unknown]
  - Drug effect incomplete [Unknown]
